FAERS Safety Report 12558812 (Version 1)
Quarter: 2016Q3

REPORT INFORMATION
  Report Type: Spontaneous
  Country: GB (occurrence: GB)
  Receive Date: 20160715
  Receipt Date: 20160715
  Transmission Date: 20161109
  Serious: Yes (Life-Threatening, Hospitalization, Other)
  Sender: FDA-Public Use
  Company Number: GB-UCBSA-2016026334

PATIENT
  Age: 31 Year
  Sex: Female

DRUGS (5)
  1. KEPPRA [Suspect]
     Active Substance: LEVETIRACETAM
     Indication: COMPLEX PARTIAL SEIZURES
     Dosage: 750 MG, 2X/DAY (BID)
     Route: 048
     Dates: start: 20151208
  2. KEPPRA [Suspect]
     Active Substance: LEVETIRACETAM
     Indication: PARTIAL SEIZURES
     Dosage: TITRATED UP SLOWLY
     Route: 048
     Dates: end: 20160428
  3. LAMOTRIGINE. [Concomitant]
     Active Substance: LAMOTRIGINE
     Dosage: START REDUCING LAMOTRIGINE SLOWLY TO PRE-PREGNANCY LEVEL
  4. LAMOTRIGINE. [Concomitant]
     Active Substance: LAMOTRIGINE
     Indication: PRODUCT USED FOR UNKNOWN INDICATION
     Dosage: 350 MG, ONCE DAILY (QD)
     Route: 048
  5. LAMOTRIGINE. [Concomitant]
     Active Substance: LAMOTRIGINE
     Dosage: INCREASED BY 50MG DURING PREGNANCY

REACTIONS (4)
  - Torsade de pointes [Recovered/Resolved]
  - Electrocardiogram QT prolonged [Recovering/Resolving]
  - Cardiac arrest [Recovered/Resolved]
  - Epilepsy [Recovered/Resolved]

NARRATIVE: CASE EVENT DATE: 20160428
